FAERS Safety Report 20540301 (Version 1)
Quarter: 2022Q1

REPORT INFORMATION
  Report Type: Spontaneous
  Country: US (occurrence: US)
  Receive Date: 20220302
  Receipt Date: 20220302
  Transmission Date: 20220423
  Serious: No
  Sender: FDA-Public Use
  Company Number: US-SANOFI-00990580

PATIENT

DRUGS (2)
  1. ADLYXIN [Suspect]
     Active Substance: LIXISENATIDE
     Dosage: UNK
  2. ADLYXIN [Suspect]
     Active Substance: LIXISENATIDE
     Dosage: UNK

REACTIONS (1)
  - Product dose omission issue [Unknown]
